FAERS Safety Report 18327733 (Version 1)
Quarter: 2020Q3

REPORT INFORMATION
  Report Type: Spontaneous
  Country: US (occurrence: US)
  Receive Date: 20200930
  Receipt Date: 20200930
  Transmission Date: 20201103
  Serious: Yes (Other)
  Sender: FDA-Public Use
  Company Number: US-STRIDES ARCOLAB LIMITED-2020SP007128

PATIENT
  Sex: Male

DRUGS (34)
  1. MYCOPHENOLATE MOFETIL. [Concomitant]
     Active Substance: MYCOPHENOLATE MOFETIL
     Dosage: 500 MILLIGRAM, BID
     Route: 065
  2. VITAMIN B COMPLEX [Concomitant]
     Active Substance: CYANOCOBALAMIN\DEXPANTHENOL\NIACINAMIDE\PYRIDOXINE HYDROCHLORIDE\RIBOFLAVIN 5^-PHOSPHATE SODIUM\THIAMINE HYDROCHLORIDE\VITAMIN B COMPLEX
     Indication: TONGUE ULCERATION
     Dosage: UNK
     Route: 065
  3. METOPROLOL. [Concomitant]
     Active Substance: METOPROLOL
     Indication: PRODUCT USED FOR UNKNOWN INDICATION
     Dosage: 25 MILLIGRAM, BID
     Route: 048
  4. SOLIFENACIN [Concomitant]
     Active Substance: SOLIFENACIN
     Indication: PRODUCT USED FOR UNKNOWN INDICATION
     Dosage: 5 MILLIGRAM, DAILY.
     Route: 048
  5. CLOBETASOL [Suspect]
     Active Substance: CLOBETASOL
     Indication: ORAL PAIN
     Dosage: UNK, APPLIED DIRECTLY TO LESIONS TWICE DAILY.
     Route: 065
  6. TACROLIMUS. [Concomitant]
     Active Substance: TACROLIMUS
     Indication: RENAL TRANSPLANT
     Dosage: 4 MILLIGRAM, BID
     Route: 065
  7. NYSTATIN. [Concomitant]
     Active Substance: NYSTATIN
     Indication: TONGUE ULCERATION
     Dosage: 5 MILLILITER, TID
     Route: 048
  8. BENZOCAINE. [Concomitant]
     Active Substance: BENZOCAINE
     Indication: PRODUCT USED FOR UNKNOWN INDICATION
     Dosage: UNK, APPLIED FOUR TIMES DAILY.
     Route: 061
  9. THYMOGLOBULIN [Concomitant]
     Active Substance: LAPINE T-LYMPHOCYTE IMMUNE GLOBULIN
     Dosage: 2 MILLIGRAM/KILOGRAM, 2 DOSES ON POST OPERATIVE DAY 1 AND 2.
     Route: 042
  10. METHYLPREDNISOLONE. [Concomitant]
     Active Substance: METHYLPREDNISOLONE
     Dosage: 60 MILLIGRAM, ON POST OPERATIVE DAY 3.
     Route: 042
  11. OXYCODONE AND ACETAMINOPHEN [Concomitant]
     Active Substance: ACETAMINOPHEN\OXYCODONE HYDROCHLORIDE
     Indication: PRODUCT USED FOR UNKNOWN INDICATION
     Dosage: (7.5MG/325MG), EVERY 4 FOURS AS NEEDED.
     Route: 048
  12. NYSTATIN. [Concomitant]
     Active Substance: NYSTATIN
     Indication: ANTIFUNGAL PROPHYLAXIS
     Dosage: 5 MILLILITER, TID
     Route: 048
  13. VITAMIN C [Concomitant]
     Active Substance: ASCORBIC ACID
     Indication: TONGUE ULCERATION
     Dosage: 500 MILLIGRAM
     Route: 065
  14. THYMOGLOBULIN [Concomitant]
     Active Substance: LAPINE T-LYMPHOCYTE IMMUNE GLOBULIN
     Indication: RENAL TRANSPLANT
     Dosage: 2 MILLIGRAM/KILOGRAM, ONCE, INDUCTION THERAPY.
     Route: 042
  15. SULFAMETHOXAZOLE AND TRIMETHOPRIM [Concomitant]
     Active Substance: SULFAMETHOXAZOLE\TRIMETHOPRIM
     Indication: PNEUMOCYSTIS JIROVECII PNEUMONIA
     Dosage: 320MG/160MG, THRICE A WEEK.
     Route: 065
  16. LIDOCAINE. [Suspect]
     Active Substance: LIDOCAINE
     Indication: ORAL PAIN
     Dosage: UNK, APPLIED DIRECTLY TO LESIONS TWICE DAILY.
     Route: 065
  17. METHYLPREDNISOLONE. [Concomitant]
     Active Substance: METHYLPREDNISOLONE
     Dosage: 250 MILLIGRAM, ON POST OPERATIVE DAY 1.
     Route: 042
  18. MYCOPHENOLATE MOFETIL. [Concomitant]
     Active Substance: MYCOPHENOLATE MOFETIL
     Indication: RENAL TRANSPLANT
     Dosage: 1000 MILLIGRAM, BID
     Route: 048
  19. MYCOPHENOLATE MOFETIL. [Concomitant]
     Active Substance: MYCOPHENOLATE MOFETIL
     Dosage: 250 MILLIGRAM
     Route: 065
  20. DOCUSATE SODIUM;SENNA [Concomitant]
     Active Substance: DOCUSATE SODIUM\SENNOSIDES
     Indication: PRODUCT USED FOR UNKNOWN INDICATION
     Dosage: UNK, 1 TABLET TWICE DAILY.
     Route: 048
  21. ZINC. [Concomitant]
     Active Substance: ZINC
     Indication: TONGUE ULCERATION
     Dosage: 220 MILLIGRAM
     Route: 065
  22. METHYLPREDNISOLONE. [Concomitant]
     Active Substance: METHYLPREDNISOLONE
     Dosage: 125 MILLIGRAM, ON POST OPERATIVE DAY 2.
     Route: 042
  23. AMLODIPINE [Concomitant]
     Active Substance: AMLODIPINE BESYLATE
     Indication: PRODUCT USED FOR UNKNOWN INDICATION
     Dosage: 10 MILLIGRAM, DAILY.
     Route: 048
  24. LEVODOPA/CARBIDOPA/ENTACAPONE [Concomitant]
     Active Substance: CARBIDOPA\ENTACAPONE\LEVODOPA
     Indication: PRODUCT USED FOR UNKNOWN INDICATION
     Dosage: 100, 25 AND 200 MG RESPECTIVELY,1 TABLET THREE TIMES A DAY.
     Route: 048
  25. ROTIGOTINE [Concomitant]
     Active Substance: ROTIGOTINE
     Indication: PRODUCT USED FOR UNKNOWN INDICATION
     Dosage: 2 MILLIGRAM, PER DAY, TRANSDERMAL FILM.
     Route: 048
  26. SIMVASTATIN. [Concomitant]
     Active Substance: SIMVASTATIN
     Indication: PRODUCT USED FOR UNKNOWN INDICATION
     Dosage: 20 MILLIGRAM, DAILY.
     Route: 048
  27. CLINDAMYCIN. [Concomitant]
     Active Substance: CLINDAMYCIN
     Indication: TONGUE ULCERATION
     Dosage: 600 MILLIGRAM, BID
     Route: 065
  28. VALGANCICLOVIR. [Concomitant]
     Active Substance: VALGANCICLOVIR
     Indication: CYTOMEGALOVIRUS INFECTION
     Dosage: 900 MILLIGRAM, DAILY BY MOUTH.
     Route: 065
  29. TACROLIMUS. [Concomitant]
     Active Substance: TACROLIMUS
     Dosage: 1 MILLIGRAM, BID, (REDUCED FROM 3 TO 1 MG).
     Route: 065
  30. METHYLPREDNISOLONE. [Concomitant]
     Active Substance: METHYLPREDNISOLONE
     Indication: RENAL TRANSPLANT
     Dosage: 500 MILLIGRAM, INDUCTION THERAPY.
     Route: 042
  31. ASPIRIN [ACETYLSALICYLIC ACID] [Concomitant]
     Active Substance: ASPIRIN
     Indication: PRODUCT USED FOR UNKNOWN INDICATION
     Dosage: 81 MILLIGRAM, DAILY.
     Route: 048
  32. PANTOPRAZOLE [Concomitant]
     Active Substance: PANTOPRAZOLE
     Indication: PRODUCT USED FOR UNKNOWN INDICATION
     Dosage: 40 MILLIGRAM, DAILY.
     Route: 048
  33. TAMSULOSIN [Concomitant]
     Active Substance: TAMSULOSIN
     Indication: PRODUCT USED FOR UNKNOWN INDICATION
     Dosage: 0.4 MILLIGRAM, DAILY.
     Route: 048
  34. METFORMIN [Concomitant]
     Active Substance: METFORMIN HYDROCHLORIDE
     Indication: DIABETES MELLITUS INADEQUATE CONTROL
     Dosage: UNK
     Route: 065

REACTIONS (1)
  - Drug ineffective [Unknown]
